FAERS Safety Report 6180413-0 (Version None)
Quarter: 2009Q2

REPORT INFORMATION
  Report Type: 
  Country: None (occurrence: None)
  Receive Date: 20090506
  Receipt Date: 20090424
  Transmission Date: 20091009
  Serious: No
  Sender: FDA-Public Use
  Company Number: GB-PFIZER INC-2009185567

PATIENT

DRUGS (2)
  1. EPIRUBICIN HCL [Suspect]
     Indication: BREAST CANCER
  2. DOXORUBICIN HCL [Interacting]

REACTIONS (4)
  - DRUG INTERACTION [None]
  - NAUSEA [None]
  - PANIC REACTION [None]
  - VOMITING [None]
